FAERS Safety Report 25159395 (Version 1)
Quarter: 2025Q2

REPORT INFORMATION
  Report Type: Spontaneous
  Country: US (occurrence: US)
  Receive Date: 20250404
  Receipt Date: 20250404
  Transmission Date: 20250716
  Serious: Yes (Hospitalization, Other)
  Sender: ZYDUS PHARM
  Company Number: US-CADILA HEALTHCARE LIMITED-US-ZYDUS-121521

PATIENT

DRUGS (1)
  1. HYDROXYCHLOROQUINE [Suspect]
     Active Substance: HYDROXYCHLOROQUINE
     Indication: Product used for unknown indication
     Route: 065

REACTIONS (6)
  - Brain oedema [Recovered/Resolved]
  - Drug level increased [Unknown]
  - Pulseless electrical activity [Unknown]
  - Seizure [Unknown]
  - Tachycardia [Unknown]
  - Hypotension [Unknown]
